FAERS Safety Report 9184078 (Version 2)
Quarter: 2013Q1

REPORT INFORMATION
  Report Type: Spontaneous
  Country: US (occurrence: US)
  Receive Date: 20130322
  Receipt Date: 20130329
  Transmission Date: 20140127
  Serious: No
  Sender: FDA-Public Use
  Company Number: US-009507513-1303USA009609

PATIENT
  Sex: 0
  Weight: 119.73 kg

DRUGS (2)
  1. NEXPLANON [Suspect]
     Dosage: 1 ROD UP FOR 3 YEARS
     Dates: start: 20130315, end: 20130315
  2. NEXPLANON [Suspect]
     Dosage: UNK
     Dates: start: 20130315

REACTIONS (3)
  - Device difficult to use [Unknown]
  - Product quality issue [Unknown]
  - No adverse event [Unknown]
